FAERS Safety Report 6773241-6 (Version None)
Quarter: 2010Q2

REPORT INFORMATION
  Report Type: 
  Country: None (occurrence: None)
  Receive Date: 20100616
  Receipt Date: 20100407
  Transmission Date: 20101027
  Serious: No
  Sender: FDA-Public Use
  Company Number: US-ABBOTT-10P-163-0631495-00

PATIENT
  Sex: Female
  Weight: 67.192 kg

DRUGS (1)
  1. TRILIPIX [Suspect]
     Indication: DRUG USE FOR UNKNOWN INDICATION

REACTIONS (8)
  - ARTHRALGIA [None]
  - DIARRHOEA [None]
  - ERYTHEMA [None]
  - FACE OEDEMA [None]
  - JOINT WARMTH [None]
  - OEDEMA PERIPHERAL [None]
  - SERUM SICKNESS [None]
  - URTICARIA [None]
